FAERS Safety Report 5278594-6 (Version None)
Quarter: 2007Q1

REPORT INFORMATION
  Report Type: 
  Country: None (occurrence: None)
  Receive Date: 20070328
  Receipt Date: 20070322
  Transmission Date: 20070707
  Serious: Yes (Hospitalization)
  Sender: FDA-Public Use
  Company Number: US-GLAXOSMITHKLINE-A0644268A

PATIENT
  Age: 27 Year
  Sex: Female

DRUGS (2)
  1. ZOFRAN [Suspect]
     Indication: VOMITING IN PREGNANCY
     Dosage: 8MG TWICE PER DAY
     Route: 048
     Dates: start: 20070302
  2. NO CONCURRENT MEDICATION [Concomitant]

REACTIONS (2)
  - DEHYDRATION [None]
  - DRUG EXPOSURE DURING PREGNANCY [None]
